FAERS Safety Report 23376536 (Version 6)
Quarter: 2024Q2

REPORT INFORMATION
  Report Type: Report from Study
  Country: US (occurrence: US)
  Receive Date: 20240108
  Receipt Date: 20240515
  Transmission Date: 20240716
  Serious: Yes (Other)
  Sender: FDA-Public Use
  Company Number: US-ABBVIE-5545114

PATIENT
  Sex: Male
  Weight: 86 kg

DRUGS (4)
  1. SKYRIZI [Suspect]
     Active Substance: RISANKIZUMAB-RZAA
     Indication: Psoriatic arthropathy
     Dosage: FORM STRENGTH: 150 MILLIGRAM
     Route: 058
     Dates: start: 20230911, end: 20240418
  2. SKYRIZI [Suspect]
     Active Substance: RISANKIZUMAB-RZAA
     Indication: Psoriasis
     Dosage: LAST ADMIN DATE: 2023
     Route: 058
     Dates: start: 20230803
  3. LOSARTAN POTASSIUM [Concomitant]
     Active Substance: LOSARTAN POTASSIUM
     Indication: Hypertension
  4. OMEPRAZOLE [Concomitant]
     Active Substance: DONEPEZIL HYDROCHLORIDE\OMEPRAZOLE\OMEPRAZOLE MAGNESIUM
     Indication: Gastrooesophageal reflux disease

REACTIONS (6)
  - Blepharitis [Recovered/Resolved]
  - Pain [Recovered/Resolved]
  - Drug ineffective [Not Recovered/Not Resolved]
  - Intraocular pressure test abnormal [Unknown]
  - Musculoskeletal disorder [Unknown]
  - Psoriasis [Unknown]

NARRATIVE: CASE EVENT DATE: 20230101
